FAERS Safety Report 20958532 (Version 2)
Quarter: 2022Q2

REPORT INFORMATION
  Report Type: Spontaneous
  Country: US (occurrence: US)
  Receive Date: 20220614
  Receipt Date: 20220623
  Transmission Date: 20220721
  Serious: No
  Sender: FDA-Public Use
  Company Number: US-PFIZER INC-202200811874

PATIENT
  Age: 56 Year
  Sex: Female

DRUGS (1)
  1. EUCRISA [Suspect]
     Active Substance: CRISABOROLE
     Indication: Seborrhoeic dermatitis
     Dosage: UNK, 2X/DAY, (APPLY TO AFFECTED AREAS ON THE FACE, 2X/DAY)
     Route: 061

REACTIONS (2)
  - COVID-19 [Unknown]
  - Off label use [Unknown]
